FAERS Safety Report 13776360 (Version 1)
Quarter: 2017Q3

REPORT INFORMATION
  Report Type: Spontaneous
  Country: US (occurrence: US)
  Receive Date: 20170720
  Receipt Date: 20170720
  Transmission Date: 20171127
  Serious: Yes (Other)
  Sender: FDA-Public Use
  Company Number: PHHY2017US102041

PATIENT
  Age: 67 Year
  Sex: Male

DRUGS (3)
  1. HALOPERIDOL. [Concomitant]
     Active Substance: HALOPERIDOL
     Indication: SCHIZOPHRENIA
     Dosage: 15 MG, BID
     Route: 048
  2. LEUPRORELIN [Suspect]
     Active Substance: LEUPROLIDE ACETATE
     Indication: PROSTATIC SPECIFIC ANTIGEN INCREASED
     Dosage: 45 MG, EVERY 6 MONTHS
     Route: 058
     Dates: start: 201602
  3. BENZTROPINE [Concomitant]
     Active Substance: BENZTROPINE
     Indication: SCHIZOPHRENIA
     Dosage: 1 MG, BID
     Route: 065

REACTIONS (6)
  - Concomitant disease aggravated [Recovered/Resolved]
  - Schizophrenia [Recovered/Resolved]
  - Paranoia [Recovered/Resolved]
  - Homicidal ideation [Recovered/Resolved]
  - Irritability [Recovered/Resolved]
  - Screaming [Recovered/Resolved]

NARRATIVE: CASE EVENT DATE: 201603
